FAERS Safety Report 6656899-1 (Version None)
Quarter: 2010Q1

REPORT INFORMATION
  Report Type: 
  Country: None (occurrence: None)
  Receive Date: 20100329
  Receipt Date: 20100329
  Transmission Date: 20100710
  Serious: Yes (Hospitalization)
  Sender: FDA-Public Use
  Company Number: None

PATIENT
  Age: 69 Year
  Sex: Male

DRUGS (1)
  1. FLUCONAZOLE [Suspect]
     Indication: SURGERY
     Dosage: 200 MG EVERY DAY IV
     Route: 042
     Dates: start: 20100220, end: 20100226

REACTIONS (1)
  - RASH [None]
